APPROVED DRUG PRODUCT: FLUOCINOLONE ACETONIDE
Active Ingredient: FLUOCINOLONE ACETONIDE
Strength: 0.01%
Dosage Form/Route: OIL;TOPICAL
Application: A203377 | Product #001 | TE Code: AT
Applicant: RISING PHARMA HOLDINGS INC
Approved: Apr 25, 2016 | RLD: No | RS: No | Type: RX